FAERS Safety Report 15490352 (Version 1)
Quarter: 2018Q4

REPORT INFORMATION
  Report Type: Spontaneous
  Country: PT (occurrence: PT)
  Receive Date: 20181011
  Receipt Date: 20181011
  Transmission Date: 20190205
  Serious: Yes (Other)
  Sender: FDA-Public Use
  Company Number: PHHY2018PT119956

PATIENT
  Age: 21 Year
  Sex: Male

DRUGS (2)
  1. DOXYCYCLINE. [Concomitant]
     Active Substance: DOXYCYCLINE
     Indication: ANTIBIOTIC THERAPY
     Dosage: 100 MG, QD
     Route: 065
  2. CEFTRIAXONE. [Suspect]
     Active Substance: CEFTRIAXONE
     Indication: ANTIBIOTIC THERAPY
     Dosage: 2 G, QD
     Route: 065

REACTIONS (1)
  - Neuroborreliosis [Unknown]
